FAERS Safety Report 4526208-2 (Version None)
Quarter: 2004Q4

REPORT INFORMATION
  Report Type: 
  Country: None (occurrence: None)
  Receive Date: 20041214
  Receipt Date: 20041206
  Transmission Date: 20050328
  Serious: Yes (Other)
  Sender: FDA-Public Use
  Company Number: 200421985GDDC

PATIENT
  Age: 85 Year
  Sex: Female

DRUGS (2)
  1. KETEK [Suspect]
     Indication: INFECTION
     Dosage: DOSE: UNK
     Route: 048
     Dates: start: 20040101, end: 20040101
  2. WARFARIN SODIUM [Suspect]
     Dosage: DOSE: UNK
     Route: 048

REACTIONS (2)
  - DRUG INTERACTION [None]
  - PULMONARY HAEMORRHAGE [None]
